FAERS Safety Report 20405265 (Version 1)
Quarter: 2022Q1

REPORT INFORMATION
  Report Type: Spontaneous
  Country: US (occurrence: US)
  Receive Date: 20220131
  Receipt Date: 20220131
  Transmission Date: 20220423
  Serious: No
  Sender: FDA-Public Use
  Company Number: US-PFIZER INC-202101854446

PATIENT
  Age: 71 Year
  Sex: Female
  Weight: 43.537 kg

DRUGS (2)
  1. SUTENT [Suspect]
     Active Substance: SUNITINIB MALATE
     Indication: Gastrointestinal stromal tumour
     Dosage: 50 MG, CYCLIC (4 WKS, 2 WKS OFF)
     Dates: start: 20211223
  2. LISINOPRIL [Concomitant]
     Active Substance: LISINOPRIL
     Indication: Blood pressure management
     Dosage: UNK
     Dates: start: 20211230

REACTIONS (14)
  - Dyspepsia [Unknown]
  - Nausea [Unknown]
  - Taste disorder [Unknown]
  - Hypertension [Unknown]
  - Oral pain [Unknown]
  - Dry mouth [Unknown]
  - Fatigue [Unknown]
  - Constipation [Unknown]
  - Pain [Unknown]
  - Eructation [Unknown]
  - Flatulence [Unknown]
  - Asthenia [Unknown]
  - Chills [Recovered/Resolved]
  - Myalgia [Recovered/Resolved]
